FAERS Safety Report 7229345-7 (Version None)
Quarter: 2011Q1

REPORT INFORMATION
  Report Type: 
  Country: None (occurrence: None)
  Receive Date: 20110117
  Receipt Date: 20110103
  Transmission Date: 20110831
  Serious: Yes (Congenital Anomaly)
  Sender: FDA-Public Use
  Company Number: A0680544A

PATIENT
  Sex: Male
  Weight: 4.7 kg

DRUGS (1)
  1. PAXIL [Suspect]
     Indication: MAJOR DEPRESSION

REACTIONS (5)
  - PULMONARY VALVE STENOSIS [None]
  - PATENT DUCTUS ARTERIOSUS [None]
  - NOONAN SYNDROME [None]
  - DRUG EXPOSURE DURING PREGNANCY [None]
  - CONGENITAL CORONARY ARTERY MALFORMATION [None]
